FAERS Safety Report 21178191 (Version 3)
Quarter: 2023Q1

REPORT INFORMATION
  Report Type: Spontaneous
  Country: US (occurrence: US)
  Receive Date: 20220805
  Receipt Date: 20230228
  Transmission Date: 20230418
  Serious: Yes (Hospitalization, Other)
  Sender: FDA-Public Use
  Company Number: US-NOVOPROD-944553

PATIENT
  Age: 64 Year
  Sex: Male
  Weight: 71.202 kg

DRUGS (10)
  1. OZEMPIC [Suspect]
     Active Substance: SEMAGLUTIDE
     Dosage: 0.5 MG, QW
     Route: 058
     Dates: start: 20200117, end: 202007
  2. OZEMPIC [Suspect]
     Active Substance: SEMAGLUTIDE
     Indication: Type 2 diabetes mellitus
     Dosage: 0.5 MG, QW
     Route: 058
     Dates: start: 20200117, end: 202006
  3. METFORMIN [Concomitant]
     Active Substance: METFORMIN HYDROCHLORIDE
     Indication: Product used for unknown indication
     Dosage: 1000 MG, BID
     Dates: start: 20191227
  4. CIPROFLOXACIN [Concomitant]
     Active Substance: CIPROFLOXACIN
     Indication: Product used for unknown indication
     Dosage: 500 MG
     Dates: start: 20200904, end: 20201015
  5. CLINDAMYCIN [Concomitant]
     Active Substance: CLINDAMYCIN
     Indication: Product used for unknown indication
     Dosage: 150 MG
     Dates: start: 20200801, end: 20200914
  6. METHYLPREDNISOLONE [Concomitant]
     Active Substance: METHYLPREDNISOLONE
     Indication: Product used for unknown indication
     Dosage: 4 MG
     Dates: start: 20200716, end: 20200914
  7. OMEPRAZOLE [Concomitant]
     Active Substance: OMEPRAZOLE
     Indication: Product used for unknown indication
     Dosage: 20 MG
     Dates: start: 20200901, end: 20201117
  8. PREDNISONE [Concomitant]
     Active Substance: PREDNISONE
     Indication: Product used for unknown indication
     Dosage: 10 MG
     Dates: start: 20200712, end: 20200914
  9. SULFAMETHOXAZOLE\TRIMETHOPRIM [Concomitant]
     Active Substance: SULFAMETHOXAZOLE\TRIMETHOPRIM
     Indication: Product used for unknown indication
     Dosage: 160/800 MG
     Dates: start: 20200716, end: 20200914
  10. HYDROCODONE BITARTRATE AND ACETAMINOPHEN [Concomitant]
     Active Substance: ACETAMINOPHEN\HYDROCODONE BITARTRATE
     Indication: Product used for unknown indication
     Dosage: UNK
     Dates: start: 20200731

REACTIONS (18)
  - Pyrexia [Recovered/Resolved]
  - Vocal cord dysfunction [Recovering/Resolving]
  - Dysphonia [Not Recovered/Not Resolved]
  - Throat cancer [Unknown]
  - Psoriasis [Recovered/Resolved]
  - Weight decreased [Not Recovered/Not Resolved]
  - Thyroid mass [Unknown]
  - Herpes zoster [Recovered/Resolved]
  - Oropharyngeal pain [Unknown]
  - Tooth extraction [Unknown]
  - Respiratory fume inhalation disorder [Unknown]
  - Exposure to fungus [Unknown]
  - Immunoglobulin G4 related disease [Unknown]
  - Laryngeal disorder [Unknown]
  - Vocal cord polyp [Unknown]
  - Laryngeal disorder [Unknown]
  - Benign neoplasm [Recovering/Resolving]
  - Diarrhoea [Recovered/Resolved]

NARRATIVE: CASE EVENT DATE: 20200101
